FAERS Safety Report 8590994-5 (Version None)
Quarter: 2012Q3

REPORT INFORMATION
  Report Type: 
  Country: None (occurrence: None)
  Receive Date: 20120813
  Receipt Date: 20120809
  Transmission Date: 20120928
  Serious: Yes (Death, Other)
  Sender: FDA-Public Use
  Company Number: US-JNJFOC-20120413300

PATIENT
  Sex: Male

DRUGS (2)
  1. XARELTO [Suspect]
     Route: 048
  2. XARELTO [Suspect]
     Indication: PRODUCT USED FOR UNKNOWN INDICATION
     Route: 048
     Dates: start: 20120101

REACTIONS (5)
  - FEELING HOT [None]
  - HYPERSENSITIVITY [None]
  - ARTHRALGIA [None]
  - DEATH [None]
  - SWELLING [None]
